FAERS Safety Report 7450815-0 (Version None)
Quarter: 2011Q2

REPORT INFORMATION
  Report Type: 
  Country: None (occurrence: None)
  Receive Date: 20110502
  Receipt Date: 20110419
  Transmission Date: 20111010
  Serious: Yes (Hospitalization)
  Sender: FDA-Public Use
  Company Number: FR-GENENTECH-317487

PATIENT
  Sex: Female
  Weight: 61 kg

DRUGS (9)
  1. PROPOFAN [Concomitant]
     Indication: OSTEOARTHRITIS
     Dosage: UNK
  2. VINCRISTINE [Suspect]
     Indication: DIFFUSE LARGE B-CELL LYMPHOMA
     Dosage: 2 MG, UNK
     Route: 042
     Dates: start: 20090415, end: 20090716
  3. VERAPAMIL [Concomitant]
     Indication: ANGINA PECTORIS
     Dosage: UNK
  4. CYCLOPHOSPHAMIDE [Suspect]
     Indication: DIFFUSE LARGE B-CELL LYMPHOMA
     Dosage: 940 MG, UNK
     Route: 042
     Dates: start: 20090415
  5. VASTAREL [Concomitant]
     Indication: VERTIGO
     Dosage: UNK
  6. DOXORUBICINE [Suspect]
     Indication: DIFFUSE LARGE B-CELL LYMPHOMA
     Dosage: UNK
     Route: 042
     Dates: start: 20090415
  7. DIHYDROERGOTAMINE [Concomitant]
     Indication: OSTEOARTHRITIS
     Dosage: UNK
  8. RITUXIMAB [Suspect]
     Indication: DIFFUSE LARGE B-CELL LYMPHOMA
     Dosage: 630 MG, UNK
     Route: 042
     Dates: start: 20090415, end: 20090716
  9. TANGANIL [Concomitant]
     Indication: VERTIGO
     Dosage: UNK

REACTIONS (1)
  - VENOUS THROMBOSIS LIMB [None]
